FAERS Safety Report 5729050-X (Version None)
Quarter: 2008Q2

REPORT INFORMATION
  Report Type: 
  Country: None (occurrence: None)
  Receive Date: 20080505
  Receipt Date: 20080505
  Transmission Date: 20081010
  Serious: No
  Sender: FDA-Public Use
  Company Number: None

PATIENT
  Sex: Female

DRUGS (1)
  1. AUGMENTIN '875' [Suspect]
     Dosage: 875MG/125MG #20 1 BID X 10 DAYS ORAL
     Route: 048
     Dates: start: 20080415

REACTIONS (1)
  - RASH MACULO-PAPULAR [None]
